FAERS Safety Report 5358910-7 (Version None)
Quarter: 2007Q2

REPORT INFORMATION
  Report Type: 
  Country: None (occurrence: None)
  Receive Date: 20070615
  Receipt Date: 20070604
  Transmission Date: 20071010
  Serious: Yes (Other)
  Sender: FDA-Public Use
  Company Number: B0471610A

PATIENT
  Age: 67 Year
  Sex: Male
  Weight: 114 kg

DRUGS (9)
  1. AVANDAMET [Suspect]
     Route: 048
     Dates: start: 20070201
  2. BISOPROLOL FUMARATE [Concomitant]
     Dates: start: 20041001
  3. FUROSEMIDE [Concomitant]
     Dates: start: 20041001
  4. GLICLAZIDE [Concomitant]
     Dates: start: 20041004
  5. SIMVASTATIN [Concomitant]
     Dates: start: 20041001
  6. SLOZEM [Concomitant]
     Dates: start: 20041001
  7. VALSARTAN [Concomitant]
     Dates: start: 20041001
  8. TRAMADOL HCL [Concomitant]
  9. ASPIRIN [Concomitant]
     Dates: start: 20041001

REACTIONS (3)
  - MALAISE [None]
  - RENAL FAILURE [None]
  - VOMITING [None]
